FAERS Safety Report 8481322 (Version 2)
Quarter: 2014Q2

REPORT INFORMATION
  Report Type: Spontaneous
  Country: AR (occurrence: AR)
  Receive Date: 20120329
  Receipt Date: 20140414
  Transmission Date: 20141212
  Serious: Yes (Hospitalization, Other)
  Sender: FDA-Public Use
  Company Number: AR-AMGEN-ARGSP2012018398

PATIENT
  Age: 47 Year
  Sex: Female

DRUGS (4)
  1. ENBREL [Suspect]
     Indication: RHEUMATOID ARTHRITIS
     Dosage: 50 MG, WEEKLY
     Route: 058
     Dates: start: 20100331, end: 201105
  2. ENBREL [Suspect]
     Dosage: UNK
     Route: 065
     Dates: start: 201106, end: 201112
  3. ENBREL [Suspect]
     Dosage: UNK
     Route: 065
  4. LEFLUNOMIDE [Concomitant]
     Dosage: UNK

REACTIONS (7)
  - Femur fracture [Recovered/Resolved]
  - Device breakage [Recovered/Resolved]
  - Rheumatoid arthritis [Recovering/Resolving]
  - Pain in extremity [Recovering/Resolving]
  - Fall [Not Recovered/Not Resolved]
  - Burning sensation [Recovering/Resolving]
  - Feeling hot [Recovering/Resolving]
